FAERS Safety Report 19730780 (Version 2)
Quarter: 2023Q1

REPORT INFORMATION
  Report Type: Report from Study
  Country: EG (occurrence: EG)
  Receive Date: 20210821
  Receipt Date: 20230217
  Transmission Date: 20230417
  Serious: Yes (Other)
  Sender: FDA-Public Use
  Company Number: EG-NOVARTISPH-NVSC2021EG181149

PATIENT
  Sex: Female

DRUGS (4)
  1. TASIGNA [Suspect]
     Active Substance: NILOTINIB
     Indication: Chronic myeloid leukaemia
     Dosage: 150 MG, 2 CAPS, BID (LESS THAN 2 YEARS AGO)
     Route: 065
  2. TASIGNA [Suspect]
     Active Substance: NILOTINIB
     Dosage: 200 MG, BID, 1 CAP (ONE WEEK AGO)
     Route: 065
     Dates: end: 202204
  3. TASIGNA [Suspect]
     Active Substance: NILOTINIB
     Dosage: 600 MG, QD, (150MG THEN 3 CAPS OF TASIGNA 200MG)
     Route: 065
     Dates: start: 202204, end: 202204
  4. DICLOFENAC POTASSIUM [Concomitant]
     Active Substance: DICLOFENAC POTASSIUM
     Indication: Product used for unknown indication
     Dosage: UNK
     Route: 065

REACTIONS (8)
  - Urine output decreased [Not Recovered/Not Resolved]
  - Discomfort [Not Recovered/Not Resolved]
  - Fluid retention [Not Recovered/Not Resolved]
  - Pain [Recovering/Resolving]
  - Fatigue [Recovering/Resolving]
  - Maternal exposure during pregnancy [Unknown]
  - Normal newborn [Unknown]
  - Product availability issue [Unknown]
